FAERS Safety Report 9304292 (Version 1)
Quarter: 2013Q2

REPORT INFORMATION
  Report Type: Spontaneous
  Country: US (occurrence: US)
  Receive Date: 20130522
  Receipt Date: 20130522
  Transmission Date: 20140414
  Serious: No
  Sender: FDA-Public Use
  Company Number: US-PFIZER INC-2013154350

PATIENT
  Age: 69 Year
  Sex: Female
  Weight: 57.6 kg

DRUGS (12)
  1. ATORVASTATIN CALCIUM [Suspect]
     Indication: BLOOD CHOLESTEROL INCREASED
     Dosage: 10 MG, 1X/DAY
     Route: 048
     Dates: start: 20130515, end: 20130516
  2. QUINAPRIL [Concomitant]
     Indication: HYPERTENSION
     Dosage: UNK
  3. BENADRYL [Concomitant]
     Indication: DIZZINESS
     Dosage: UNK
  4. BENADRYL [Concomitant]
     Indication: HYPOAESTHESIA
  5. BENADRYL [Concomitant]
     Indication: PARAESTHESIA
  6. BENADRYL [Concomitant]
     Indication: PRURITUS GENERALISED
  7. BENADRYL [Concomitant]
     Indication: SWELLING FACE
  8. PREDNISONE [Concomitant]
     Indication: DIZZINESS
     Dosage: UNK
  9. PREDNISONE [Concomitant]
     Indication: HYPOAESTHESIA
  10. PREDNISONE [Concomitant]
     Indication: PARAESTHESIA
  11. PREDNISONE [Concomitant]
     Indication: PRURITUS GENERALISED
  12. PREDNISONE [Concomitant]
     Indication: SWELLING FACE

REACTIONS (5)
  - Dizziness [Not Recovered/Not Resolved]
  - Hypoaesthesia [Not Recovered/Not Resolved]
  - Paraesthesia [Not Recovered/Not Resolved]
  - Vertigo [Not Recovered/Not Resolved]
  - Facial pain [Not Recovered/Not Resolved]
